FAERS Safety Report 11428527 (Version 1)
Quarter: 2015Q3

REPORT INFORMATION
  Report Type: Spontaneous
  Country: CN (occurrence: CN)
  Receive Date: 20150828
  Receipt Date: 20150828
  Transmission Date: 20151125
  Serious: Yes (Other)
  Sender: FDA-Public Use
  Company Number: CN-JNJFOC-20150814236

PATIENT
  Age: 6 Month
  Sex: Female
  Weight: 8 kg

DRUGS (2)
  1. ACETAMINOPHEN INFANTS [Suspect]
     Active Substance: ACETAMINOPHEN
     Indication: PYREXIA
     Route: 048
     Dates: start: 20150820, end: 20150820
  2. ACETAMINOPHEN INFANTS [Suspect]
     Active Substance: ACETAMINOPHEN
     Indication: PYREXIA
     Route: 048
     Dates: start: 20150819, end: 20150819

REACTIONS (3)
  - Accidental overdose [None]
  - Overdose [Unknown]
  - Product quality issue [None]

NARRATIVE: CASE EVENT DATE: 20150820
